FAERS Safety Report 5127827-5 (Version None)
Quarter: 2006Q4

REPORT INFORMATION
  Report Type: 
  Country: None (occurrence: None)
  Receive Date: 20061016
  Receipt Date: 20060308
  Transmission Date: 20070319
  Serious: Yes (Disabling)
  Sender: FDA-Public Use
  Company Number: US-MERCK-0603USA01443

PATIENT
  Age: 13 Year
  Sex: Male
  Weight: 54 kg

DRUGS (5)
  1. SINGULAIR [Suspect]
     Indication: ASTHMA
     Route: 048
     Dates: start: 20050106, end: 20060215
  2. SINGULAIR [Suspect]
     Indication: HYPERSENSITIVITY
     Route: 048
     Dates: start: 20050106, end: 20060215
  3. TRAZODONE HYDROCHLORIDE [Concomitant]
     Route: 048
     Dates: start: 20050104
  4. REGLAN [Concomitant]
     Route: 048
     Dates: start: 20050104, end: 20050105
  5. REGLAN [Concomitant]
     Route: 048
     Dates: end: 20050104

REACTIONS (24)
  - ABDOMINAL PAIN [None]
  - AMNESIA [None]
  - ASTHMA [None]
  - CONFUSIONAL STATE [None]
  - CONSTIPATION [None]
  - DECREASED APPETITE [None]
  - DEPRESSED LEVEL OF CONSCIOUSNESS [None]
  - DISORIENTATION [None]
  - EAR INFECTION [None]
  - FATIGUE [None]
  - GASTROENTERITIS VIRAL [None]
  - HALLUCINATION [None]
  - HYPERSENSITIVITY [None]
  - INFLUENZA LIKE ILLNESS [None]
  - IRRITABLE BOWEL SYNDROME [None]
  - MIGRAINE WITHOUT AURA [None]
  - PHARYNGITIS [None]
  - PRESCRIBED OVERDOSE [None]
  - PYREXIA [None]
  - SINUSITIS [None]
  - SLEEP TALKING [None]
  - SLEEP WALKING [None]
  - SOMNOLENCE [None]
  - STOMACH DISCOMFORT [None]
